FAERS Safety Report 15195735 (Version 2)
Quarter: 2018Q3

REPORT INFORMATION
  Report Type: Spontaneous
  Country: ZA (occurrence: ZA)
  Receive Date: 20180725
  Receipt Date: 20180919
  Transmission Date: 20181010
  Serious: Yes (Other)
  Sender: FDA-Public Use
  Company Number: ZA-PFIZER INC-2018296312

PATIENT
  Age: 80 Year
  Sex: Female

DRUGS (7)
  1. SINOPREN [Suspect]
     Active Substance: LISINOPRIL
     Dosage: 10 MG, UNK
  2. MYLAN OXYBUTYNIN [Suspect]
     Active Substance: OXYBUTYNIN
     Dosage: 5 MG, UNK
  3. OMEZ [Suspect]
     Active Substance: OMEPRAZOLE
     Dosage: 20 MG, UNK
  4. THADEN [Suspect]
     Active Substance: DOTHIEPIN HYDROCHLORIDE
     Dosage: 25 MG, UNK
  5. INDERAL [Suspect]
     Active Substance: PROPRANOLOL HYDROCHLORIDE
     Dosage: 10 MG, UNK
  6. ASPAVOR [Suspect]
     Active Substance: ATORVASTATIN
     Dosage: 10 MG, UNK
  7. SANDOZ?ZOPICLONE [Suspect]
     Active Substance: ZOPICLONE
     Dosage: 7.5 MG, UNK

REACTIONS (2)
  - Dementia Alzheimer^s type [Unknown]
  - Bipolar disorder [Unknown]
